FAERS Safety Report 23356693 (Version 1)
Quarter: 2024Q1

REPORT INFORMATION
  Report Type: Spontaneous
  Country: CN (occurrence: CN)
  Receive Date: 20240102
  Receipt Date: 20240102
  Transmission Date: 20240409
  Serious: Yes (Other)
  Sender: FDA-Public Use
  Company Number: CN-Merck Healthcare KGaA-2023496865

PATIENT
  Age: 30 Year
  Sex: Female
  Weight: 65 kg

DRUGS (9)
  1. GONAL-F [Suspect]
     Active Substance: FOLLITROPIN
     Indication: Ovulation induction
     Route: 058
     Dates: start: 20231122, end: 20231130
  2. GONAL-F [Suspect]
     Active Substance: FOLLITROPIN
     Route: 058
     Dates: start: 20231201, end: 20231204
  3. LUVERIS [Suspect]
     Active Substance: LUTROPIN ALFA
     Indication: Ovulation induction
     Route: 058
     Dates: start: 20231127, end: 20231201
  4. LUVERIS [Suspect]
     Active Substance: LUTROPIN ALFA
     Route: 058
     Dates: start: 20231204, end: 20231204
  5. MENOTROPINS [Suspect]
     Active Substance: MENOTROPINS
     Indication: Ovulation induction
     Route: 030
     Dates: start: 20231201, end: 20231203
  6. CHORIONIC GONADOTROPHIN [Suspect]
     Active Substance: CHORIOGONADOTROPIN ALFA
     Indication: Ovulation induction
     Route: 030
     Dates: start: 20231204, end: 20231204
  7. SODIUM CHLORIDE [Concomitant]
     Active Substance: SODIUM CHLORIDE
     Indication: Vehicle solution use
     Route: 030
     Dates: start: 20231201, end: 20231203
  8. SODIUM CHLORIDE [Concomitant]
     Active Substance: SODIUM CHLORIDE
     Route: 030
     Dates: start: 20231204, end: 20231204
  9. STERILE WATER [Concomitant]
     Active Substance: WATER
     Indication: Vehicle solution use
     Route: 058
     Dates: start: 20231127, end: 20231204

REACTIONS (4)
  - Ovarian hyperstimulation syndrome [Recovering/Resolving]
  - Dyspnoea [Recovering/Resolving]
  - Vomiting [Recovering/Resolving]
  - Abdominal distension [Recovering/Resolving]

NARRATIVE: CASE EVENT DATE: 20231209
